FAERS Safety Report 7882134-2 (Version None)
Quarter: 2011Q4

REPORT INFORMATION
  Report Type: 
  Country: None (occurrence: None)
  Receive Date: 20111101
  Receipt Date: 20110609
  Transmission Date: 20120403
  Serious: Yes (Hospitalization)
  Sender: FDA-Public Use
  Company Number: US-AMGEN-USASP2011023050

PATIENT
  Sex: Male

DRUGS (2)
  1. ENBREL [Suspect]
     Indication: PSORIASIS
     Dosage: UNK
     Dates: start: 20070101
  2. ENBREL [Suspect]
     Dosage: UNK
     Dates: start: 20070101

REACTIONS (1)
  - CHOLECYSTITIS INFECTIVE [None]
